FAERS Safety Report 8023724-6 (Version None)
Quarter: 2012Q1

REPORT INFORMATION
  Report Type: 
  Country: None (occurrence: None)
  Receive Date: 20120105
  Receipt Date: 20111230
  Transmission Date: 20120608
  Serious: Yes (Other)
  Sender: FDA-Public Use
  Company Number: US-BAYER-2012-000522

PATIENT
  Age: 39 Year
  Sex: Female

DRUGS (1)
  1. MIRENA [Suspect]
     Indication: CONTRACEPTION
     Dosage: 20 MCG/24HR, CONT
     Dates: start: 20100901

REACTIONS (7)
  - PELVIC INFECTION [None]
  - BURNING SENSATION [None]
  - PELVIC INFLAMMATORY DISEASE [None]
  - VAGINAL DISCHARGE [None]
  - UTERINE PAIN [None]
  - INSOMNIA [None]
  - PRURITUS [None]
